FAERS Safety Report 8178455-9 (Version None)
Quarter: 2012Q1

REPORT INFORMATION
  Report Type: 
  Country: None (occurrence: None)
  Receive Date: 20120301
  Receipt Date: 20120223
  Transmission Date: 20120608
  Serious: Yes (Other)
  Sender: FDA-Public Use
  Company Number: US-PFIZER INC-2012049133

PATIENT
  Sex: Female

DRUGS (1)
  1. LYRICA [Suspect]
     Dosage: UNK

REACTIONS (9)
  - PRURITUS [None]
  - STRESS [None]
  - MUSCLE DISORDER [None]
  - DERMATITIS [None]
  - HEART RATE INCREASED [None]
  - DIZZINESS [None]
  - NAUSEA [None]
  - AGITATION [None]
  - URTICARIA [None]
